FAERS Safety Report 24992584 (Version 2)
Quarter: 2025Q1

REPORT INFORMATION
  Report Type: Spontaneous
  Country: US (occurrence: US)
  Receive Date: 20250221
  Receipt Date: 20250228
  Transmission Date: 20250409
  Serious: No
  Sender: BRISTOL-MYERS SQUIBB COMPANY
  Company Number: US-BRISTOL-MYERS SQUIBB COMPANY-2025-025474

PATIENT
  Age: 65 Year
  Sex: Male

DRUGS (2)
  1. POMALYST [Suspect]
     Active Substance: POMALIDOMIDE
     Indication: Kaposi^s sarcoma
  2. POMALYST [Suspect]
     Active Substance: POMALIDOMIDE
     Indication: Carcinoma in situ of skin
     Route: 048

REACTIONS (2)
  - Product dispensing error [Unknown]
  - Off label use [Unknown]
